FAERS Safety Report 4852383-6 (Version None)
Quarter: 2005Q4

REPORT INFORMATION
  Report Type: 
  Country: None (occurrence: None)
  Receive Date: 20051213
  Receipt Date: 20051202
  Transmission Date: 20060501
  Serious: Yes (Other)
  Sender: FDA-Public Use
  Company Number: US-JNJFOC-20051104154

PATIENT
  Sex: Female
  Weight: 68.04 kg

DRUGS (6)
  1. TOPAMAX [Suspect]
     Dosage: 50 MG IN THE AM AND 75 IN THE PM
     Route: 048
  2. TOPAMAX [Suspect]
     Indication: MIGRAINE
     Dosage: 50 MG IN THE AM AND 50 MG IN THE PM
     Route: 048
  3. NEXIUM [Suspect]
  4. ELAVIL [Concomitant]
     Indication: HEADACHE
  5. HYDROXYUREA [Concomitant]
  6. ASPIRIN [Concomitant]

REACTIONS (5)
  - CONSTIPATION [None]
  - DRY MOUTH [None]
  - GASTRIC HAEMORRHAGE [None]
  - PRURITUS [None]
  - RASH GENERALISED [None]
